FAERS Safety Report 24703851 (Version 1)
Quarter: 2024Q4

REPORT INFORMATION
  Report Type: Report from Study
  Country: HU (occurrence: HU)
  Receive Date: 20241206
  Receipt Date: 20241206
  Transmission Date: 20250115
  Serious: Yes (Hospitalization, Other)
  Sender: ABBVIE
  Company Number: HU-ABBVIE-6028572

PATIENT
  Age: 63 Year
  Sex: Female

DRUGS (7)
  1. CARBIDOPA\LEVODOPA [Suspect]
     Active Substance: CARBIDOPA\LEVODOPA
     Indication: Parkinson^s disease
     Dosage: MORNING DOSE: 3.7 ML; CONTINUOUS DOSE: 2.7 ML/HOUR; EXTRA DOSE: 2.2 ML
     Route: 050
     Dates: start: 20150127
  2. CARBIDOPA\LEVODOPA [Suspect]
     Active Substance: CARBIDOPA\LEVODOPA
  3. VENLAFAXINE HYDROCHLORIDE [Concomitant]
     Active Substance: VENLAFAXINE HYDROCHLORIDE
     Indication: Depression
     Dosage: 20 MILLIGRAM?FORM STRENGTH: 10 MILLIGRAM
     Route: 048
  4. STALEVO [Concomitant]
     Active Substance: CARBIDOPA\ENTACAPONE\LEVODOPA
     Indication: Parkinson^s disease
     Dosage: 100 MG LEVODOPA, 25 MG BENSERAZIDE, 200 MG ENTACAPONE  / TABLET
     Route: 048
  5. PALIXID [Concomitant]
     Indication: Dementia
     Dosage: FORM STRENGTH:10 MILLIGRAM
     Route: 048
     Dates: start: 202105
  6. MIRVEDOL [Concomitant]
     Indication: Dementia
     Dosage: FORM STRENGTH:10 MILLIGRAM
     Route: 048
  7. ASPIRIN [Concomitant]
     Active Substance: ASPIRIN
     Indication: Prophylaxis
     Dosage: FORM STRENGTH: 100 MILLIGRAM
     Route: 048

REACTIONS (13)
  - Abdominal pain [Recovered/Resolved]
  - Pylorus dilatation [Not Recovered/Not Resolved]
  - Vomiting [Recovered/Resolved]
  - Intussusception [Not Recovered/Not Resolved]
  - Intussusception [Recovered/Resolved]
  - Pylorus dilatation [Recovered/Resolved]
  - Altered state of consciousness [Unknown]
  - Pylorus dilatation [Unknown]
  - Muscular weakness [Unknown]
  - Femur fracture [Unknown]
  - Hypertensive crisis [Unknown]
  - Transient ischaemic attack [Unknown]
  - Femoral neck fracture [Unknown]

NARRATIVE: CASE EVENT DATE: 20190215
